FAERS Safety Report 4388541-7 (Version None)
Quarter: 2004Q2

REPORT INFORMATION
  Report Type: 
  Country: None (occurrence: None)
  Receive Date: 20040625
  Receipt Date: 20040615
  Transmission Date: 20050107
  Serious: Yes (Death, Hospitalization)
  Sender: FDA-Public Use
  Company Number: FR-JNJFOC-20040603725

PATIENT
  Age: 85 Year
  Sex: Female

DRUGS (1)
  1. RISPERDAL [Suspect]
     Indication: AGITATION
     Dosage: ORAL
     Route: 048
     Dates: start: 20040415, end: 20040416

REACTIONS (1)
  - TONGUE OEDEMA [None]
